FAERS Safety Report 9713898 (Version 5)
Quarter: 2014Q3

REPORT INFORMATION
  Report Type: Spontaneous
  Country: US (occurrence: None)
  Receive Date: 20131122
  Receipt Date: 20140701
  Transmission Date: 20150326
  Serious: Yes (Hospitalization, Other)
  Sender: FDA-Public Use
  Company Number: JPI-P-029399

PATIENT
  Age: 61 Year
  Sex: Male
  Weight: 105.5 kg

DRUGS (18)
  1. PREDNISONE (PREDNISONE) [Concomitant]
     Active Substance: PREDNISONE
  2. INHALERS (ALL OTHER THERAPEUTIC PRODUCTS) [Concomitant]
  3. SOLU-MEDROL [Suspect]
     Active Substance: METHYLPREDNISOLONE SODIUM SUCCINATE
     Indication: MYOPATHY
  4. SOLU-MEDROL [Suspect]
     Active Substance: METHYLPREDNISOLONE SODIUM SUCCINATE
     Indication: IMMUNE SYSTEM DISORDER
  5. RANITIDINE [Concomitant]
     Active Substance: RANITIDINE\RANITIDINE HYDROCHLORIDE
  6. PROAIR (ALBUTAMOL SULFATE) [Concomitant]
  7. NIASPAN (NICOTINIC ACID) [Concomitant]
  8. UNSPECIFIED MEDICATION (ALL OTHER THERAPEUTIC PRODUCTS) [Concomitant]
     Indication: MYOPATHY
  9. XYREM [Suspect]
     Active Substance: SODIUM OXYBATE
     Indication: SLEEP DISORDER
     Dosage: 2.25 G, BID, ORAL
     Route: 048
     Dates: start: 200411, end: 200412
  10. NUVIGIL [Concomitant]
     Active Substance: ARMODAFINIL
  11. BYSTOLIC [Concomitant]
     Active Substance: NEBIVOLOL HYDROCHLORIDE
  12. LOVAZA (OMEGA-3-ACID ETHYL ESTER) [Concomitant]
  13. CANDESARTAN (CANDESARTAN) [Concomitant]
  14. SYNTHROID [Concomitant]
     Active Substance: LEVOTHYROXINE SODIUM
  15. FLOVENT [Concomitant]
     Active Substance: FLUTICASONE PROPIONATE
  16. PREDNISONE (PREDNISONE) [Concomitant]
     Active Substance: PREDNISONE
  17. NEXIUM [Concomitant]
     Active Substance: ESOMEPRAZOLE MAGNESIUM
  18. TRIAMCINOLONE (TRIAMCINOLONE) NASAL SPRAY [Concomitant]

REACTIONS (14)
  - Weight increased [None]
  - Initial insomnia [None]
  - Cough [None]
  - Blood pressure increased [None]
  - Aldolase increased [None]
  - Hallucination [None]
  - Sleep disorder [None]
  - Off label use [None]
  - Bronchitis [None]
  - Polymyositis [None]
  - Blood creatine phosphokinase increased [None]
  - Feeling abnormal [None]
  - Eosinophilic oesophagitis [None]
  - Dizziness [None]

NARRATIVE: CASE EVENT DATE: 2012
